FAERS Safety Report 6837872-7 (Version None)
Quarter: 2010Q3

REPORT INFORMATION
  Report Type: 
  Country: None (occurrence: None)
  Receive Date: 20100709
  Receipt Date: 20100623
  Transmission Date: 20110219
  Serious: Yes (Hospitalization)
  Sender: FDA-Public Use
  Company Number: CV20100301

PATIENT
  Age: 36 Year
  Sex: Female

DRUGS (10)
  1. PROPOFOL [Suspect]
     Indication: INDUCTION OF ANAESTHESIA
     Dates: start: 20091217
  2. ULTIVA [Suspect]
  3. NORMACOL (BACTRIM (BACTRIM) [Concomitant]
  4. BETADINE (POVIDONE-IODINE) (POVIDONE-IODINE) [Concomitant]
  5. NAROPEINE (ROPIVACAINEHYDROCHLORIDE) (ROPIVACAINE HYDROCHLORIDE) [Concomitant]
  6. DROPEPTAN (DROPERIDOL) (DROPERIDOL) [Concomitant]
  7. KETAMINE PANPHARMA (KETAMINE HYDROCHLORIDE) (KETAMINE HYDROCHLORIDE) [Concomitant]
  8. AUGMANTIN (AMOXI-CLAVULANICO) (AMOXI-CLAVULANICO) [Concomitant]
  9. MORPHIN LAVOISIER (MORPHINE) (MORPHINE) [Concomitant]
  10. KALINOX (ENTONOX) (ENTONOX) [Concomitant]

REACTIONS (3)
  - LYMPHOPENIA [None]
  - RENAL FAILURE ACUTE [None]
  - THROMBOCYTOPENIA [None]
